FAERS Safety Report 4372521-1 (Version None)
Quarter: 2004Q2

REPORT INFORMATION
  Report Type: 
  Country: None (occurrence: None)
  Receive Date: 20040601
  Receipt Date: 20040415
  Transmission Date: 20050107
  Serious: No
  Sender: FDA-Public Use
  Company Number: 701875

PATIENT
  Age: 49 Year
  Sex: Female
  Weight: 113.3993 kg

DRUGS (2)
  1. AMEVIVE [Suspect]
     Indication: PSORIASIS
     Dosage: 15 MG QW IM
     Route: 030
     Dates: start: 20040323
  2. METHOTREXATE [Concomitant]

REACTIONS (4)
  - PRURITUS [None]
  - PSORIASIS [None]
  - RASH MACULAR [None]
  - SKIN BURNING SENSATION [None]
